FAERS Safety Report 21483920 (Version 2)
Quarter: 2022Q4

REPORT INFORMATION
  Report Type: Report from Study
  Country: US (occurrence: None)
  Receive Date: 20221020
  Receipt Date: 20221129
  Transmission Date: 20230113
  Serious: Yes (Other)
  Sender: FDA-Public Use
  Company Number: US-ROCHE-3203455

PATIENT
  Age: 68 Year
  Sex: Male
  Weight: 100 kg

DRUGS (1)
  1. TENECTEPLASE [Suspect]
     Active Substance: TENECTEPLASE
     Indication: Cerebrovascular accident
     Route: 013
     Dates: start: 20221014, end: 20221014

REACTIONS (1)
  - Carotid artery stenosis [Recovered/Resolved]

NARRATIVE: CASE EVENT DATE: 20221014
